FAERS Safety Report 9291779 (Version 4)
Quarter: 2013Q3

REPORT INFORMATION
  Report Type: Spontaneous
  Country: US (occurrence: US)
  Receive Date: 20130516
  Receipt Date: 20130827
  Transmission Date: 20140515
  Serious: Yes (Hospitalization)
  Sender: FDA-Public Use
  Company Number: US-BIOGENIDEC-2013BI043044

PATIENT
  Age: 30 Year
  Sex: Female

DRUGS (15)
  1. TYSABRI [Suspect]
     Indication: MULTIPLE SCLEROSIS
     Route: 042
     Dates: start: 20070223, end: 20100616
  2. TYSABRI [Suspect]
     Indication: MULTIPLE SCLEROSIS
     Route: 042
     Dates: start: 20110617, end: 20130328
  3. ALBUTEROL [Concomitant]
     Indication: ASTHMA
  4. ALMOTRIPTAN [Concomitant]
     Indication: MIGRAINE
  5. LOMOTIL [Concomitant]
     Indication: DIARRHOEA
  6. BACLOFEN [Concomitant]
     Indication: MUSCLE SPASTICITY
  7. GABAPENTIN [Concomitant]
     Indication: PAIN
  8. DEPO-PROVERA [Concomitant]
     Indication: HORMONE REPLACEMENT THERAPY
  9. NYSTATIN [Concomitant]
     Indication: CANDIDA INFECTION
     Route: 061
  10. PROMETHAZINE [Concomitant]
     Indication: NAUSEA
  11. SUCRALFATE [Concomitant]
     Indication: GASTROOESOPHAGEAL REFLUX DISEASE
  12. TRAZODONE [Concomitant]
     Indication: SLEEP DISORDER
  13. WARFARIN [Concomitant]
     Indication: ANTICOAGULANT THERAPY
  14. BUPROPION [Concomitant]
     Indication: DEPRESSION
  15. DIAZEPAM [Concomitant]
     Indication: MUSCLE SPASTICITY

REACTIONS (6)
  - Nausea [Not Recovered/Not Resolved]
  - Vomiting [Recovered/Resolved]
  - Diarrhoea [Recovered/Resolved]
  - Candiduria [Not Recovered/Not Resolved]
  - Dehydration [Recovered/Resolved]
  - Dysphagia [Not Recovered/Not Resolved]
